FAERS Safety Report 10470275 (Version 1)
Quarter: 2014Q3

REPORT INFORMATION
  Report Type: Spontaneous
  Country: US (occurrence: None)
  Receive Date: 20140909
  Receipt Date: 20140909
  Transmission Date: 20150326
  Serious: Yes (Other)
  Sender: FDA-Public Use
  Company Number: 1284280

PATIENT
  Age: 71 Year
  Sex: Female

DRUGS (1)
  1. LUCENTIS [Suspect]
     Active Substance: RANIBIZUMAB
     Indication: RETINAL VEIN OCCLUSION
     Dosage: 0.5 UNIT NOT REPORTED INTRAVITREAL
     Dates: start: 20130917

REACTIONS (2)
  - Retinal pigment epithelial tear [None]
  - Endophthalmitis [None]

NARRATIVE: CASE EVENT DATE: 20130920
